FAERS Safety Report 16821231 (Version 1)
Quarter: 2019Q3

REPORT INFORMATION
  Report Type: Spontaneous
  Country: US (occurrence: US)
  Receive Date: 20190918
  Receipt Date: 20190918
  Transmission Date: 20191005
  Serious: No
  Sender: FDA-Public Use
  Company Number: US-GRANULES INDIA LIMITED-2074571

PATIENT

DRUGS (1)
  1. METFORMIN HYDROCHLORIDE. [Suspect]
     Active Substance: METFORMIN HYDROCHLORIDE
     Indication: PROSTATE CANCER
     Route: 065
     Dates: start: 20190402

REACTIONS (4)
  - Product odour abnormal [Unknown]
  - Depression [Recovered/Resolved]
  - Metabolic disorder [Recovered/Resolved]
  - Product use in unapproved indication [Unknown]
